FAERS Safety Report 6403420-9 (Version None)
Quarter: 2009Q4

REPORT INFORMATION
  Report Type: 
  Country: None (occurrence: None)
  Receive Date: 20091013
  Receipt Date: 20090930
  Transmission Date: 20100525
  Serious: Yes (Death)
  Sender: FDA-Public Use
  Company Number: A-CH2009-25413

PATIENT
  Age: 54 Year
  Sex: Female

DRUGS (11)
  1. TRACLEER [Suspect]
     Indication: SKIN ULCER
     Dosage: 125 MG, BID, ORAL ; 62.5 MG, BID, ORAL
     Route: 048
     Dates: start: 20090101, end: 20090201
  2. TRACLEER [Suspect]
     Indication: SKIN ULCER
     Dosage: 125 MG, BID, ORAL ; 62.5 MG, BID, ORAL
     Route: 048
     Dates: start: 20090201, end: 20090501
  3. PROZAC [Concomitant]
  4. ATORVASTATIN CALCIUM [Concomitant]
  5. PREDNISONE [Concomitant]
  6. NEXIUM [Concomitant]
  7. MODURETIC 5-50 [Concomitant]
  8. TARDYFERON (FERROUS SULFATE) [Concomitant]
  9. POTASSIUM CHLORIDE [Concomitant]
  10. ILOMEDIN [Concomitant]
  11. LEVOTHYROXINE SODIUM [Concomitant]

REACTIONS (1)
  - DEATH [None]
